FAERS Safety Report 8823418 (Version 2)
Quarter: 2012Q4

REPORT INFORMATION
  Report Type: 
  Country: US (occurrence: US)
  Receive Date: 20121003
  Receipt Date: 20121015
  Transmission Date: 20130627
  Serious: Yes (Other)
  Sender: FDA-Public Use
  Company Number: US-ASTRAZENECA-2012SE74347

PATIENT
  Age: 40 Year
  Sex: Male

DRUGS (19)
  1. LISINOPRIL [Suspect]
     Route: 048
  2. NEXIUM [Suspect]
     Route: 048
     Dates: start: 20120628
  3. PRILOSEC [Concomitant]
     Route: 048
     Dates: start: 20120628
  4. PROVENTIL/VENTOLIN [Concomitant]
     Dosage: 90MCG/ACT INHALER, INHALE TWO PUFFS ITO THE LUNGS EVERY SIX HOURS AS NEEDED
     Route: 055
     Dates: start: 20120628
  5. ELAVIL [Concomitant]
     Route: 048
     Dates: start: 20120628
  6. NORVASC [Concomitant]
     Route: 048
     Dates: start: 20120209
  7. LIPITOR [Concomitant]
     Route: 048
     Dates: start: 20120628
  8. CELEBREX [Concomitant]
     Route: 048
     Dates: start: 20120628
  9. ZYRTEC [Concomitant]
     Route: 048
     Dates: start: 20120628
  10. BENADRYL ALLERGY [Concomitant]
     Dosage: TAKE BY MOUTH AS NEEDED
     Route: 048
  11. FLONASE [Concomitant]
     Dosage: TWO SPRAYS EACH NOSTRIL TWICE A DAY
     Route: 045
     Dates: start: 20110308
  12. FLOVENT HFA [Concomitant]
     Dosage: 110 MCG/ACT INHALE TWO PUFF INTO THE LUNGS TWO TIMES DAILY
     Route: 055
     Dates: start: 20120628
  13. ADVAIR [Concomitant]
     Dosage: 250-50 MCG/DOSE INHALE ONE PUFF INTO THE LUNGS EVERY TWELVE HOURS
     Route: 055
     Dates: start: 20120224
  14. HYDRODIURIL [Concomitant]
     Route: 048
     Dates: start: 20120628
  15. LAMICTAL [Concomitant]
     Route: 048
     Dates: start: 20120625
  16. COMPAZINE [Concomitant]
     Dosage: TAKE 1 TABELT BY MOUTH WTO TIMES DAILY AS NEEDED
     Route: 048
     Dates: start: 20120705
  17. ZANTAC [Concomitant]
     Route: 048
     Dates: start: 20120628
  18. VIAGRA [Concomitant]
     Dosage: TAKE ONE TABLET BY MOUTH AS NEEDED
     Route: 048
     Dates: start: 20120409
  19. ZANAFLEX [Concomitant]
     Route: 048
     Dates: start: 20120625

REACTIONS (3)
  - Neoplasm malignant [Unknown]
  - Drug hypersensitivity [Unknown]
  - Renal failure acute [Unknown]
